FAERS Safety Report 7636799-0 (Version None)
Quarter: 2011Q3

REPORT INFORMATION
  Report Type: 
  Country: None (occurrence: None)
  Receive Date: 20110726
  Receipt Date: 20110725
  Transmission Date: 20111222
  Serious: Yes (Other)
  Sender: FDA-Public Use
  Company Number: US-BRISTOL-MYERS SQUIBB COMPANY-15810328

PATIENT
  Age: 39 Year
  Sex: Female

DRUGS (5)
  1. CITALOPRAM HYDROBROMIDE [Concomitant]
     Indication: DEPRESSION
     Dates: start: 20100101
  2. ABILIFY [Suspect]
     Indication: BIPOLAR DISORDER
     Dosage: LAST DOSE:06JUN11
     Route: 048
     Dates: start: 20110510
  3. SEROQUEL [Concomitant]
     Dates: start: 20100101
  4. ABILIFY [Suspect]
     Indication: DEPRESSION
     Dosage: LAST DOSE:06JUN11
     Route: 048
     Dates: start: 20110510
  5. TOPAMAX [Concomitant]
     Indication: DEPRESSION
     Dates: start: 20100101

REACTIONS (4)
  - PAIN IN JAW [None]
  - SUICIDE ATTEMPT [None]
  - TACHYPHRENIA [None]
  - DEPRESSION [None]
